FAERS Safety Report 17803427 (Version 3)
Quarter: 2021Q2

REPORT INFORMATION
  Report Type: Report from Study
  Country: GB (occurrence: GB)
  Receive Date: 20200519
  Receipt Date: 20210608
  Transmission Date: 20210716
  Serious: Yes (Hospitalization)
  Sender: FDA-Public Use
  Company Number: GB-ROCHE-2597566

PATIENT
  Age: 86 Year
  Sex: Male
  Weight: 63 kg

DRUGS (7)
  1. RITUXIMAB. [Suspect]
     Active Substance: RITUXIMAB
     Indication: DIFFUSE LARGE B-CELL LYMPHOMA REFRACTORY
  2. ATEZOLIZUMAB. [Suspect]
     Active Substance: ATEZOLIZUMAB
     Indication: DIFFUSE LARGE B-CELL LYMPHOMA RECURRENT
     Dosage: DATE OF MOST RECENT ADMINISTRATION PRIOR TO  SAE ONSET: 17/APR/2020
     Route: 041
     Dates: start: 20200221
  3. RITUXIMAB. [Suspect]
     Active Substance: RITUXIMAB
     Indication: DIFFUSE LARGE B-CELL LYMPHOMA RECURRENT
     Dosage: DATE OF MOST RECENT ADMINISTRATION PRIOR TO  SAE ONSET: 17/APR/2020
     Route: 041
     Dates: start: 20200207
  4. GEMCITABINE. [Suspect]
     Active Substance: GEMCITABINE
     Indication: DIFFUSE LARGE B-CELL LYMPHOMA RECURRENT
     Dosage: DATE OF MOST RECENT ADMINISTRATION PRIOR TO  SAE ONSET: 17/APR/2020
     Route: 041
     Dates: start: 20200207
  5. OXALIPLATIN. [Suspect]
     Active Substance: OXALIPLATIN
     Indication: DIFFUSE LARGE B-CELL LYMPHOMA RECURRENT
     Dosage: DATE OF MOST RECENT ADMINISTRATION PRIOR TO  SAE ONSET: 17/APR/2020
     Route: 041
     Dates: start: 20200207
  6. RITUXIMAB. [Suspect]
     Active Substance: RITUXIMAB
     Indication: DIFFUSE LARGE B-CELL LYMPHOMA RECURRENT
     Dosage: DATE OF MOST RECENT ADMINISTRATION PRIOR TO  SAE ONSET: 17/APR/2020
     Route: 058
     Dates: start: 20200207
  7. FILGRASTIM [Suspect]
     Active Substance: FILGRASTIM
     Indication: DIFFUSE LARGE B-CELL LYMPHOMA RECURRENT
     Dosage: 30 IMU
     Route: 065
     Dates: start: 20200211, end: 20200421

REACTIONS (2)
  - Gastric ulcer [Recovered/Resolved]
  - Anaemia [Recovered/Resolved]

NARRATIVE: CASE EVENT DATE: 20200506
